FAERS Safety Report 6084782-1 (Version None)
Quarter: 2009Q1

REPORT INFORMATION
  Report Type: 
  Country: None (occurrence: None)
  Receive Date: 20090217
  Receipt Date: 20090203
  Transmission Date: 20090719
  Serious: Yes (Hospitalization)
  Sender: FDA-Public Use
  Company Number: 310001M08JPN

PATIENT
  Age: 36 Year
  Sex: Male
  Weight: 80 kg

DRUGS (4)
  1. GONAL-F [Suspect]
     Indication: DRUG USE FOR UNKNOWN INDICATION
     Dosage: 150 IU, 3 IN 1 WEEKS; SUBCUTANEOUS, 150 IU, 1 IN 1 WEEKS, SUBCUTANEOUS
     Route: 058
     Dates: start: 20081016, end: 20080101
  2. GONAL-F [Suspect]
     Indication: DRUG USE FOR UNKNOWN INDICATION
     Dosage: 150 IU, 3 IN 1 WEEKS; SUBCUTANEOUS, 150 IU, 1 IN 1 WEEKS, SUBCUTANEOUS
     Route: 058
     Dates: start: 20080814, end: 20081002
  3. GONAL-F [Suspect]
     Indication: DRUG USE FOR UNKNOWN INDICATION
     Dosage: 150 IU, 3 IN 1 WEEKS; SUBCUTANEOUS, 150 IU, 1 IN 1 WEEKS, SUBCUTANEOUS
     Route: 058
     Dates: start: 20081127
  4. CHORIONIC GONADORTOPIN INJ [Suspect]
     Dosage: 5000 IU, 3 IN 1 WEEKS, SUBCUTANEOUS
     Route: 058
     Dates: start: 20080605, end: 20081002

REACTIONS (1)
  - RHABDOMYOLYSIS [None]
